FAERS Safety Report 25757583 (Version 1)
Quarter: 2025Q3

REPORT INFORMATION
  Report Type: Spontaneous
  Country: US (occurrence: US)
  Receive Date: 20250903
  Receipt Date: 20250903
  Transmission Date: 20251021
  Serious: Yes (Other)
  Sender: PFIZER
  Company Number: US-PFIZER INC-202500172345

PATIENT
  Age: 79 Year
  Sex: Female

DRUGS (1)
  1. IBRANCE [Suspect]
     Active Substance: PALBOCICLIB
     Route: 048

REACTIONS (27)
  - Delirium [Unknown]
  - Seizure [Unknown]
  - Kidney infection [Unknown]
  - White blood cell count decreased [Unknown]
  - Seasonal allergy [Unknown]
  - Cough [Unknown]
  - Ageusia [Unknown]
  - Abdominal distension [Unknown]
  - Dyspepsia [Unknown]
  - Dyspnoea [Unknown]
  - Vitamin D decreased [Unknown]
  - Heart rate irregular [Unknown]
  - Pruritus [Unknown]
  - Depression [Unknown]
  - Fall [Unknown]
  - Malaise [Unknown]
  - Basophil count increased [Unknown]
  - Vertigo [Unknown]
  - Cystitis [Unknown]
  - COVID-19 [Unknown]
  - Rash [Unknown]
  - Fatigue [Unknown]
  - Decreased appetite [Unknown]
  - Nausea [Unknown]
  - Diarrhoea [Unknown]
  - Asthenia [Unknown]
  - Pyrexia [Unknown]
